FAERS Safety Report 8557670-6 (Version None)
Quarter: 2012Q3

REPORT INFORMATION
  Report Type: 
  Country: None (occurrence: None)
  Receive Date: 20120801
  Receipt Date: 20120723
  Transmission Date: 20120928
  Serious: Yes (Other)
  Sender: FDA-Public Use
  Company Number: ES-ASTRAZENECA-2012SE51476

PATIENT
  Age: 43 Year
  Sex: Female

DRUGS (1)
  1. VIMOVO [Suspect]
     Indication: PHARYNGITIS
     Dosage: 500/20 MG
     Route: 048
     Dates: start: 20120325, end: 20120329

REACTIONS (4)
  - EYELID OEDEMA [None]
  - URTICARIA [None]
  - OEDEMA PERIPHERAL [None]
  - DYSPNOEA [None]
